FAERS Safety Report 4322103-2 (Version None)
Quarter: 2004Q1

REPORT INFORMATION
  Report Type: 
  Country: None (occurrence: None)
  Receive Date: 20040323
  Receipt Date: 20040310
  Transmission Date: 20041129
  Serious: Yes (Other)
  Sender: FDA-Public Use
  Company Number: NO-GLAXOSMITHKLINE-B0326233A

PATIENT
  Age: 33 Year
  Sex: Female

DRUGS (4)
  1. NIMBEX [Suspect]
     Indication: INDUCTION OF ANAESTHESIA
     Dosage: 8MG PER DAY
     Route: 042
     Dates: start: 20040227
  2. FENTANYL [Suspect]
     Indication: INDUCTION OF ANAESTHESIA
     Dosage: 150MCG PER DAY
     Route: 042
     Dates: start: 20040227
  3. PENTOTHAL [Suspect]
     Indication: INDUCTION OF ANAESTHESIA
     Dosage: 425MG PER DAY
     Route: 042
     Dates: start: 20040227
  4. CURACIT [Suspect]
     Indication: INDUCTION OF ANAESTHESIA
     Dosage: 100MG PER DAY
     Route: 042
     Dates: start: 20040227

REACTIONS (6)
  - ANAPHYLACTIC REACTION [None]
  - BLOOD PRESSURE SYSTOLIC DECREASED [None]
  - BRONCHOSPASM [None]
  - CARDIAC MURMUR [None]
  - CAROTID PULSE INCREASED [None]
  - URTICARIA [None]
